FAERS Safety Report 7569552-7 (Version None)
Quarter: 2011Q2

REPORT INFORMATION
  Report Type: 
  Country: None (occurrence: None)
  Receive Date: 20110624
  Receipt Date: 20110617
  Transmission Date: 20111010
  Serious: Yes (Death, Hospitalization)
  Sender: FDA-Public Use
  Company Number: US-CELGENEUS-163-21880-10080115

PATIENT
  Sex: Female
  Weight: 41.8 kg

DRUGS (56)
  1. CARFILZOMIB [Suspect]
     Indication: MULTIPLE MYELOMA
     Dosage: 20 MG/M2 ON DAYS 1 AND 2 AND 27 MG/M2 ON DAYS 8, 9, AND 16
     Route: 051
     Dates: start: 20091127, end: 20100724
  2. METHYLNALTREXONE [Concomitant]
     Route: 065
  3. SENNA [Concomitant]
     Route: 065
  4. ACCUPRIL [Concomitant]
     Dosage: 40 MILLIGRAM
     Route: 065
  5. CALCIUM WITH VITAMIN D [Concomitant]
     Dosage: 400MG/400 INTERNATIONAL UNITS
     Route: 065
  6. OMEPRAZOLE [Concomitant]
     Dosage: 20 MILLIGRAM
     Route: 065
  7. ARICEPT [Concomitant]
     Dosage: 1 TABLET
     Route: 048
  8. ZOMETA [Concomitant]
     Dosage: 4 MILLIGRAM
     Route: 065
  9. CEFTAZIDIME [Concomitant]
     Route: 065
  10. METOCLOPRAMIDE [Concomitant]
     Route: 065
  11. NALOXONE [Concomitant]
     Route: 065
  12. ASPIRIN [Concomitant]
     Route: 065
  13. CIPRO IN DEXTROSE 5% [Concomitant]
     Dosage: 5 PERCENT
     Route: 065
  14. OCTREOTIDE ACETATE [Concomitant]
     Route: 065
  15. HYDRAZINE [Concomitant]
     Route: 065
  16. PSYLLIUM [Concomitant]
     Route: 065
  17. BUPIVACAINE HCL [Concomitant]
     Dosage: 198.4ML
     Route: 008
  18. REVLIMID [Suspect]
     Indication: MULTIPLE MYELOMA
     Dosage: 20 MILLIGRAM
     Route: 048
     Dates: start: 20091124
  19. DEXAMETHASONE [Suspect]
     Indication: MULTIPLE MYELOMA
     Dosage: 40 MILLIGRAM
     Route: 065
     Dates: start: 20090805
  20. VITAMIN B-12 [Concomitant]
     Dosage: 1000 UNITS
     Route: 065
  21. VITAMIN B-12 [Concomitant]
     Dosage: 1 TABLET
     Route: 048
  22. ACYCLOVIR [Concomitant]
     Dosage: 400 MILLIGRAM
     Route: 048
  23. DOCUSATE [Concomitant]
     Dosage: 1 CAPSULE
     Route: 048
  24. XYLOCAINE [Concomitant]
     Dosage: 2 PERCENT
     Route: 065
  25. INSULIN LISPRO [Concomitant]
     Route: 058
  26. TPN [Concomitant]
     Dosage: 400 MILLILITER
     Route: 051
  27. LOMOTIL [Concomitant]
     Dosage: 1 TABLET
     Route: 048
  28. DEXAMETHASONE [Suspect]
     Dosage: 40 MILLIGRAM
     Route: 065
     Dates: start: 20091124
  29. DEXAMETHASONE [Suspect]
     Route: 065
  30. ACYCLOVIR [Concomitant]
     Dosage: 800 MILLIGRAM
     Route: 048
  31. FAT EMULSION [Concomitant]
     Dosage: 20 PERCENT
     Route: 065
  32. OXYCODONE HCL [Concomitant]
     Route: 065
  33. DIPHENOXYLATE HCL AND ATROPINE SULFATE [Concomitant]
     Route: 065
  34. IPRATROPIUM BROMIDE [Concomitant]
     Dosage: 0.2% 0.5MG/2.5ML
     Route: 055
  35. AMLODIPINE [Concomitant]
     Route: 065
  36. METOPROLOL TARTRATE [Concomitant]
     Dosage: 5MG/5ML
     Route: 051
  37. HYDRALAZINE HCL [Concomitant]
     Indication: HYPERTENSION
     Dosage: 10MG/0.5ML
     Route: 051
  38. TRAZODONE HCL [Concomitant]
     Dosage: 50 MILLIGRAM
     Route: 048
  39. LISINOPRIL [Concomitant]
     Route: 065
  40. SIMETHICONE [Concomitant]
     Route: 065
  41. ZOLPIDEM [Concomitant]
     Route: 065
  42. GLUCOSE [Concomitant]
     Dosage: 5%/0.45% NACL-KCL 20MEQ 1000ML
     Route: 051
  43. ALBUTEROL [Concomitant]
     Dosage: 0.083% 2.5MG/3ML
     Route: 055
  44. NAMENDA [Concomitant]
     Dosage: 2 MILLIGRAM
     Route: 065
  45. POTASSIUM CHLORIDE [Concomitant]
     Dosage: 40 MILLIGRAM
     Route: 065
  46. METRONIDAZOLE [Concomitant]
     Route: 065
  47. ACETAMINOPHEN [Concomitant]
     Route: 065
  48. HEPARIN [Concomitant]
     Route: 065
  49. ERGOCALCIFEROL [Concomitant]
     Route: 065
  50. GLUCAGON [Concomitant]
     Dosage: 0.5-1MG
     Route: 058
  51. CETYLPYRIDINIUM CHLORIDE [Concomitant]
     Dosage: 1 LOZENGE
     Route: 048
  52. CALCIUM WITH VITAMIN D [Concomitant]
     Dosage: 315MG/250 UNIT
     Route: 048
  53. PANTOPRAZOLE [Concomitant]
     Dosage: 40 MILLIGRAM
     Route: 048
  54. ONDASETRON [Concomitant]
     Route: 065
  55. BENZOCAINE-MENTHOL [Concomitant]
     Route: 065
  56. FENTANYL [Concomitant]
     Route: 065

REACTIONS (2)
  - INTESTINAL DILATATION [None]
  - COLONIC STENOSIS [None]
